FAERS Safety Report 18478840 (Version 1)
Quarter: 2020Q4

REPORT INFORMATION
  Report Type: Report from Study
  Country: FR (occurrence: FR)
  Receive Date: 20201109
  Receipt Date: 20201109
  Transmission Date: 20210114
  Serious: Yes (Other)
  Sender: FDA-Public Use
  Company Number: FR-ROCHE-2707511

PATIENT
  Age: 63 Year

DRUGS (1)
  1. ATEZOLIZUMAB. [Suspect]
     Active Substance: ATEZOLIZUMAB
     Indication: BLADDER CANCER
     Route: 042

REACTIONS (1)
  - Diabetes mellitus inadequate control [Not Recovered/Not Resolved]

NARRATIVE: CASE EVENT DATE: 20200623
